FAERS Safety Report 25476669 (Version 1)
Quarter: 2025Q2

REPORT INFORMATION
  Report Type: Spontaneous
  Country: BR (occurrence: BR)
  Receive Date: 20250625
  Receipt Date: 20250625
  Transmission Date: 20250716
  Serious: Yes (Other)
  Sender: EMD SERONO INC
  Company Number: BR-Merck Healthcare KGaA-2025030843

PATIENT
  Sex: Female

DRUGS (5)
  1. GLIFAGE [Suspect]
     Active Substance: METFORMIN HYDROCHLORIDE
     Indication: Diabetes mellitus
  2. GLIFAGE [Suspect]
     Active Substance: METFORMIN HYDROCHLORIDE
  3. GLIFAGE [Suspect]
     Active Substance: METFORMIN HYDROCHLORIDE
  4. OMEPRAZOLE [Suspect]
     Active Substance: OMEPRAZOLE
     Indication: Product used for unknown indication
  5. HYDROCHLOROTHIAZIDE [Suspect]
     Active Substance: HYDROCHLOROTHIAZIDE
     Indication: Diabetes mellitus

REACTIONS (1)
  - Dysentery [Unknown]
